FAERS Safety Report 5495289-4 (Version None)
Quarter: 2007Q4

REPORT INFORMATION
  Report Type: 
  Country: None (occurrence: None)
  Receive Date: 20071023
  Receipt Date: 20071011
  Transmission Date: 20080405
  Serious: Yes (Death, Hospitalization, Other)
  Sender: FDA-Public Use
  Company Number: 41454-1

PATIENT
  Age: 78 Year
  Weight: 90 kg

DRUGS (1)
  1. ETOPOSIDE [Suspect]
     Indication: SMALL CELL LUNG CANCER STAGE UNSPECIFIED
     Dosage: 100 MG/M2, DAY 1, DAY 2, DAY 3 O
     Dates: start: 20070703

REACTIONS (2)
  - DISEASE PROGRESSION [None]
  - PNEUMONITIS [None]
